FAERS Safety Report 5334565-2 (Version None)
Quarter: 2007Q2

REPORT INFORMATION
  Report Type: 
  Country: None (occurrence: None)
  Receive Date: 20070522
  Receipt Date: 20070514
  Transmission Date: 20071010
  Serious: Yes (Hospitalization)
  Sender: FDA-Public Use
  Company Number: 009-5013-06110592

PATIENT
  Age: 73 Year
  Sex: Female
  Weight: 58 kg

DRUGS (9)
  1. CC-5013 (LENALIDOMIDE) (CAPSULES) [Suspect]
     Indication: MULTIPLE MYELOMA
     Dosage: DAILY, ORAL
     Route: 048
     Dates: start: 20061013, end: 20061102
  2. FORTECORTIN (DEXAMETHASONE) [Concomitant]
  3. LEVOTHYROXINE SODIUM [Concomitant]
  4. DIGITOXIN TAB [Concomitant]
  5. PANTOPRAZOLE SODIUM [Concomitant]
  6. XALATAN (LATANOPROST) (DROPS) [Concomitant]
  7. MAGNOSOLV (MAGNOSOLV ^ASTA MEDICA^) [Concomitant]
  8. KALIORAL (KALIORAL) [Concomitant]
  9. LASIX [Concomitant]

REACTIONS (18)
  - ASTHENIA [None]
  - BLOOD CALCIUM DECREASED [None]
  - BLOOD CHLORIDE DECREASED [None]
  - BLOOD CHLORIDE INCREASED [None]
  - BLOOD ELECTROLYTES ABNORMAL [None]
  - BLOOD IMMUNOGLOBULIN A INCREASED [None]
  - BLOOD SODIUM DECREASED [None]
  - CHILLS [None]
  - CONDITION AGGRAVATED [None]
  - DECREASED INTEREST [None]
  - FATIGUE [None]
  - GENERAL PHYSICAL HEALTH DETERIORATION [None]
  - HAEMATOCRIT DECREASED [None]
  - HAEMOGLOBIN DECREASED [None]
  - MUSCLE SPASMS [None]
  - PLATELET COUNT DECREASED [None]
  - RENAL FAILURE [None]
  - WHITE BLOOD CELL COUNT DECREASED [None]
